FAERS Safety Report 8924378 (Version 1)
Quarter: 2012Q4

REPORT INFORMATION
  Report Type: 
  Country: US (occurrence: US)
  Receive Date: 20121126
  Receipt Date: 20121126
  Transmission Date: 20130627
  Serious: Yes (Hospitalization, Other)
  Sender: FDA-Public Use
  Company Number: US-TEVA-371241USA

PATIENT
  Age: 78 Year
  Sex: Male

DRUGS (3)
  1. EPIRUBICIN [Suspect]
     Indication: METASTATIC GASTRIC CANCER
     Route: 065
  2. OXALIPLATIN [Suspect]
     Indication: METASTATIC GASTRIC CANCER
     Route: 065
  3. CAPECITABINE [Suspect]
     Indication: METASTATIC GASTRIC CANCER
     Route: 065

REACTIONS (4)
  - Diarrhoea [Recovered/Resolved]
  - Dehydration [Recovered/Resolved]
  - Haemodynamic instability [Recovered/Resolved]
  - Renal failure acute [Recovered/Resolved]
